FAERS Safety Report 18654323 (Version 1)
Quarter: 2020Q4

REPORT INFORMATION
  Report Type: Spontaneous
  Country: US (occurrence: US)
  Receive Date: 20201223
  Receipt Date: 20201223
  Transmission Date: 20210114
  Serious: No
  Sender: FDA-Public Use
  Company Number: US-ELI_LILLY_AND_COMPANY-US202012011243

PATIENT
  Age: 73 Year
  Sex: Male

DRUGS (12)
  1. HUMALOG [Suspect]
     Active Substance: INSULIN LISPRO
     Indication: TYPE 2 DIABETES MELLITUS
     Dosage: 90 U, DAILY
     Route: 058
     Dates: start: 2005
  2. ROSUVASTATIN. [Concomitant]
     Active Substance: ROSUVASTATIN
     Indication: BLOOD CHOLESTEROL INCREASED
     Dosage: 40 MG, DAILY
  3. LEVOTHYROXINE. [Concomitant]
     Active Substance: LEVOTHYROXINE
     Indication: THYROID DISORDER
     Dosage: 150 UG, DAILY
  4. HUMALOG [Suspect]
     Active Substance: INSULIN LISPRO
     Dosage: 90 U, DAILY
     Route: 058
  5. HUMULIN N [Suspect]
     Active Substance: INSULIN HUMAN
     Indication: TYPE 2 DIABETES MELLITUS
     Dosage: 50 U, DAILY
     Route: 058
  6. LISINOPRIL/HCTZ [Concomitant]
     Active Substance: HYDROCHLOROTHIAZIDE\LISINOPRIL
     Indication: BLOOD PRESSURE INCREASED
     Dosage: 20 MG, DAILY
  7. HUMULIN N [Suspect]
     Active Substance: INSULIN HUMAN
     Dosage: 50 U, DAILY
     Route: 058
  8. HUMULIN N [Suspect]
     Active Substance: INSULIN HUMAN
     Indication: TYPE 2 DIABETES MELLITUS
     Dosage: 50 U, DAILY
     Route: 058
  9. HUMULIN N [Suspect]
     Active Substance: INSULIN HUMAN
     Dosage: 50 U, DAILY
     Route: 058
  10. LISINOPRIL/HCTZ [Concomitant]
     Active Substance: HYDROCHLOROTHIAZIDE\LISINOPRIL
     Dosage: 12 MG, DAILY
  11. HUMALOG [Suspect]
     Active Substance: INSULIN LISPRO
     Indication: TYPE 2 DIABETES MELLITUS
     Dosage: 90 U, DAILY
     Route: 058
     Dates: start: 2005
  12. HUMALOG [Suspect]
     Active Substance: INSULIN LISPRO
     Dosage: 90 U, DAILY
     Route: 058

REACTIONS (2)
  - Blood glucose increased [Unknown]
  - Drug ineffective [Unknown]

NARRATIVE: CASE EVENT DATE: 20201218
